FAERS Safety Report 17610397 (Version 1)
Quarter: 2020Q2

REPORT INFORMATION
  Report Type: Spontaneous
  Country: US (occurrence: US)
  Receive Date: 20200401
  Receipt Date: 20200401
  Transmission Date: 20200713
  Serious: No
  Sender: FDA-Public Use
  Company Number: US-PFIZER INC-2018406715

PATIENT
  Age: 57 Year
  Sex: Male

DRUGS (2)
  1. DILANTIN [Suspect]
     Active Substance: PHENYTOIN
     Indication: CERVICAL SPINAL STENOSIS
     Dosage: 4 DF, DAILY
  2. DILANTIN [Suspect]
     Active Substance: PHENYTOIN
     Dosage: 200 MG, 2X/DAY
     Route: 048

REACTIONS (5)
  - Ear discomfort [Unknown]
  - Hypoacusis [Unknown]
  - Ear infection [Unknown]
  - Product use in unapproved indication [Unknown]
  - Off label use [Unknown]
